FAERS Safety Report 24546802 (Version 1)
Quarter: 2024Q4

REPORT INFORMATION
  Report Type: Report from Study
  Country: US (occurrence: US)
  Receive Date: 20241024
  Receipt Date: 20241024
  Transmission Date: 20250115
  Serious: Yes (Death)
  Sender: ABBVIE
  Company Number: US-ABBVIE-5975158

PATIENT
  Age: 88 Year
  Sex: Female

DRUGS (1)
  1. LUMIGAN [Suspect]
     Active Substance: BIMATOPROST
     Indication: Glaucoma
     Dosage: STRENGTH- 0.3MG/ML
     Route: 047
     Dates: start: 2019, end: 20240303

REACTIONS (2)
  - Myocardial infarction [Fatal]
  - Coronary artery occlusion [Fatal]

NARRATIVE: CASE EVENT DATE: 20240303
